FAERS Safety Report 13236929 (Version 1)
Quarter: 2017Q1

REPORT INFORMATION
  Report Type: Spontaneous
  Country: TR (occurrence: TR)
  Receive Date: 20170215
  Receipt Date: 20170215
  Transmission Date: 20170428
  Serious: Yes (Life-Threatening, Other)
  Sender: FDA-Public Use
  Company Number: TR-TEVA-740275ISR

PATIENT
  Age: 65 Year
  Sex: Female

DRUGS (2)
  1. EMTHEXATE [Suspect]
     Active Substance: METHOTREXATE
     Indication: RHEUMATOID ARTHRITIS
     Route: 048
  2. IMURAN [Suspect]
     Active Substance: AZATHIOPRINE
     Dosage: UNKNOWN FORM STRENGHT
     Route: 048

REACTIONS (10)
  - Palpitations [Recovering/Resolving]
  - Blood pressure increased [Recovering/Resolving]
  - Back pain [Recovering/Resolving]
  - Vascular graft [Recovering/Resolving]
  - Dyspnoea [Recovering/Resolving]
  - Renal impairment [Recovering/Resolving]
  - Myocardial infarction [Recovering/Resolving]
  - Fatigue [Recovering/Resolving]
  - Pain in extremity [Recovering/Resolving]
  - Vomiting [Recovering/Resolving]
